FAERS Safety Report 18059820 (Version 2)
Quarter: 2021Q1

REPORT INFORMATION
  Report Type: Report from Study
  Country: US (occurrence: US)
  Receive Date: 20200723
  Receipt Date: 20210113
  Transmission Date: 20210419
  Serious: No
  Sender: FDA-Public Use
  Company Number: US-SHIRE-US202023767

PATIENT
  Age: 43 Year
  Sex: Female

DRUGS (1)
  1. 643 (LANADELUMAB) [Suspect]
     Active Substance: LANADELUMAB
     Indication: PRODUCT USED FOR UNKNOWN INDICATION
     Route: 065

REACTIONS (5)
  - Feeling abnormal [Unknown]
  - Hypersensitivity [Unknown]
  - Injection site pain [Unknown]
  - Hypotension [Unknown]
  - Drug ineffective [Unknown]
